FAERS Safety Report 19715497 (Version 1)
Quarter: 2021Q3

REPORT INFORMATION
  Report Type: Report from Study
  Country: IT (occurrence: IT)
  Receive Date: 20210818
  Receipt Date: 20210818
  Transmission Date: 20211014
  Serious: Yes (Hospitalization)
  Sender: FDA-Public Use
  Company Number: IT-CELGENEUS-ITA-20210803750

PATIENT
  Age: 78 Year
  Sex: Female
  Weight: 60 kg

DRUGS (6)
  1. LUSPATERCEPT. [Suspect]
     Active Substance: LUSPATERCEPT
     Dosage: 1.75 MILLIGRAM/KILOGRAM
     Route: 058
     Dates: start: 2021
  2. CHOLECALCIFEROL [Concomitant]
     Active Substance: CHOLECALCIFEROL
     Indication: VITAMIN D DEFICIENCY
     Dosage: 25000 IU (INTERNATIONAL UNIT)
     Route: 048
     Dates: start: 2001
  3. LUSPATERCEPT. [Suspect]
     Active Substance: LUSPATERCEPT
     Indication: ANAEMIA OF MALIGNANT DISEASE
     Dosage: 1.33 MILLIGRAM/KILOGRAM
     Route: 058
     Dates: start: 20210429
  4. DEFERASIROX. [Concomitant]
     Active Substance: DEFERASIROX
     Indication: CHELATION THERAPY
     Dosage: 900 MILLIGRAM
     Route: 048
     Dates: start: 2020
  5. NIFEDIPINE. [Concomitant]
     Active Substance: NIFEDIPINE
     Indication: RAYNAUD^S PHENOMENON
     Dosage: 10 MILLIGRAM
     Route: 048
     Dates: start: 20210301
  6. L?THYROXINE [Concomitant]
     Active Substance: LEVOTHYROXINE
     Indication: HYPOTHYROIDISM
     Dosage: 150 MICROGRAM
     Route: 048
     Dates: start: 2001

REACTIONS (1)
  - Pyrexia [Recovering/Resolving]

NARRATIVE: CASE EVENT DATE: 20210810
